FAERS Safety Report 4503844-0 (Version None)
Quarter: 2004Q4

REPORT INFORMATION
  Report Type: 
  Country: None (occurrence: None)
  Receive Date: 20041117
  Receipt Date: 20041110
  Transmission Date: 20050328
  Serious: Yes (Life-Threatening, Hospitalization, Disabling)
  Sender: FDA-Public Use
  Company Number: US-MERCK-0411USA02020

PATIENT
  Age: 58 Year
  Sex: Female

DRUGS (2)
  1. VIOXX [Suspect]
     Indication: MUSCLE CRAMP
     Route: 048
  2. NEXIUM [Concomitant]
     Route: 065

REACTIONS (1)
  - CARDIAC DISORDER [None]
